FAERS Safety Report 10853264 (Version 1)
Quarter: 2015Q1

REPORT INFORMATION
  Report Type: Spontaneous
  Country: None (occurrence: None)
  Receive Date: 20150218
  Receipt Date: 20150218
  Transmission Date: 20150721
  Serious: Yes (Death)
  Sender: FDA-Public Use
  Company Number: None

PATIENT
  Age: 55 Year
  Sex: Male

DRUGS (1)
  1. STIVARGA [Suspect]
     Active Substance: REGORAFENIB
     Indication: MALIGNANT NEOPLASM OF PLEURA
     Route: 048
     Dates: start: 20141224, end: 20150129

REACTIONS (1)
  - Death [None]

NARRATIVE: CASE EVENT DATE: 20150129
